FAERS Safety Report 9958752 (Version 1)
Quarter: 2014Q1

REPORT INFORMATION
  Report Type: Report from Study
  Country: US (occurrence: US)
  Receive Date: 20140305
  Receipt Date: 20140305
  Transmission Date: 20141002
  Serious: No
  Sender: FDA-Public Use
  Company Number: US-ABBVIE-13P-163-1103356-00

PATIENT
  Age: 59 Year
  Sex: Male

DRUGS (14)
  1. HUMIRA [Suspect]
     Indication: ANKYLOSING SPONDYLITIS
     Route: 058
     Dates: start: 20130327, end: 201304
  2. HUMIRA [Suspect]
     Route: 058
     Dates: start: 20130515
  3. AMLODIPINE [Concomitant]
     Indication: HYPERTENSION
     Dosage: 5 MG DAILY
  4. BISTOLIC [Concomitant]
     Indication: HYPERTENSION
     Dosage: 5 MG DAILY
  5. OMEPRAZOLE [Concomitant]
     Indication: DYSPEPSIA
     Dosage: 20 MG DAILY
  6. FLOMAX [Concomitant]
     Indication: PROSTATIC DISORDER
     Dosage: 0.4 MG DAILY
  7. DULERA [Concomitant]
     Indication: CHRONIC OBSTRUCTIVE PULMONARY DISEASE
     Dosage: 2 TIMES PER DAY
  8. AZATHIOPRINE [Concomitant]
     Indication: ANKYLOSING SPONDYLITIS
     Dosage: 100MG DAILY
  9. AZATHIOPRINE [Concomitant]
     Dosage: 50MG DAILY
  10. XANAX [Concomitant]
     Indication: ANXIETY
  11. XANAX [Concomitant]
     Indication: POST-TRAUMATIC STRESS DISORDER
  12. SEROQUEL [Concomitant]
     Indication: INSOMNIA
     Dosage: 50 MG AT BEDTIME
  13. SEROQUEL [Concomitant]
     Indication: ANXIETY
  14. HYDROCODONE [Concomitant]
     Indication: PAIN
     Dosage: 10/750 MG AS NEEDED

REACTIONS (9)
  - Fatigue [Not Recovered/Not Resolved]
  - Ankylosing spondylitis [Not Recovered/Not Resolved]
  - Fatigue [Not Recovered/Not Resolved]
  - Malaise [Not Recovered/Not Resolved]
  - Infected cyst [Not Recovered/Not Resolved]
  - Respiratory tract infection [Not Recovered/Not Resolved]
  - Cough [Not Recovered/Not Resolved]
  - Dysphagia [Not Recovered/Not Resolved]
  - Respiratory tract congestion [Not Recovered/Not Resolved]
